FAERS Safety Report 5294058-8 (Version None)
Quarter: 2007Q2

REPORT INFORMATION
  Report Type: 
  Country: None (occurrence: None)
  Receive Date: 20070406
  Receipt Date: 20070330
  Transmission Date: 20071010
  Serious: Yes (Death, Disabling)
  Sender: FDA-Public Use
  Company Number: 163-21880-06100506

PATIENT
  Age: 73 Year
  Sex: Male

DRUGS (1)
  1. REVLIMID [Suspect]
     Indication: MULTIPLE MYELOMA
     Dosage: DAILY X21 DAYS THEN OFF ONE WEEK, ORAL
     Route: 048
     Dates: start: 20060905, end: 20060919

REACTIONS (8)
  - ATRIAL FIBRILLATION [None]
  - DEPRESSION [None]
  - DIET REFUSAL [None]
  - MALIGNANT NEOPLASM PROGRESSION [None]
  - MULTIPLE MYELOMA [None]
  - MUSCLE SPASMS [None]
  - ORAL INTAKE REDUCED [None]
  - RENAL FAILURE [None]
